FAERS Safety Report 8808866 (Version 3)
Quarter: 2012Q4

REPORT INFORMATION
  Report Type: 
  Country: CA (occurrence: CA)
  Receive Date: 20120926
  Receipt Date: 20121227
  Transmission Date: 20130627
  Serious: Yes (Death, Hospitalization, Other)
  Sender: FDA-Public Use
  Company Number: PHHY2012CA069348

PATIENT
  Sex: Male

DRUGS (3)
  1. SANDOSTATIN LAR [Suspect]
     Indication: NEUROENDOCRINE TUMOUR
     Dosage: 30 mg, every 4 weeks
     Route: 030
     Dates: start: 20120813
  2. SANDOSTATIN LAR [Suspect]
     Dosage: UNK
     Route: 030
     Dates: start: 20120813, end: 20120923
  3. SANDOSTATIN [Suspect]
     Indication: NEUROENDOCRINE TUMOUR
     Dosage: UNK UKN, UNK
     Route: 058

REACTIONS (9)
  - Cholecystitis infective [Fatal]
  - Sepsis [Fatal]
  - General physical health deterioration [Unknown]
  - Duodenal perforation [Unknown]
  - Peritonitis [Unknown]
  - Ascites [Unknown]
  - Gallbladder perforation [Unknown]
  - Cholelithiasis [Unknown]
  - Sinus tachycardia [Unknown]
